FAERS Safety Report 20330437 (Version 1)
Quarter: 2022Q1

REPORT INFORMATION
  Report Type: Report from Study
  Country: AT (occurrence: AT)
  Receive Date: 20220113
  Receipt Date: 20220113
  Transmission Date: 20220423
  Serious: Yes (Life-Threatening, Hospitalization, Other)
  Sender: FDA-Public Use
  Company Number: AT-SUN PHARMACEUTICAL INDUSTRIES LTD-2021R1-276564

PATIENT
  Age: 22 Month
  Sex: Male
  Weight: 14 kg

DRUGS (2)
  1. EPINEPHRINE [Suspect]
     Active Substance: EPINEPHRINE
     Indication: Haemodynamic instability
     Dosage: UNK
     Route: 065
  2. NOREPINEPHRINE [Suspect]
     Active Substance: NOREPINEPHRINE
     Indication: Haemodynamic instability
     Dosage: UNK
     Route: 065

REACTIONS (4)
  - Condition aggravated [Unknown]
  - Hypotension [Recovered/Resolved]
  - Bradycardia [Recovered/Resolved]
  - Acute kidney injury [Recovering/Resolving]
